FAERS Safety Report 5136697-0 (Version None)
Quarter: 2006Q4

REPORT INFORMATION
  Report Type: 
  Country: None (occurrence: None)
  Receive Date: 20061023
  Receipt Date: 20061011
  Transmission Date: 20070319
  Serious: Yes (Other)
  Sender: FDA-Public Use
  Company Number: S06-USA-04250-01

PATIENT
  Age: 51 Year
  Sex: Female

DRUGS (8)
  1. LEXAPRO [Suspect]
     Indication: DEPRESSION
     Dosage: 10 MG QD PO
     Route: 048
     Dates: start: 20060808, end: 20060901
  2. LEXAPRO [Suspect]
     Indication: SUPRAVENTRICULAR EXTRASYSTOLES
     Dosage: 10 MG QD PO
     Route: 048
     Dates: start: 20060808, end: 20060901
  3. TOPROL-XL [Suspect]
     Indication: SUPRAVENTRICULAR TACHYCARDIA
     Dosage: 50 MG PO
     Route: 048
     Dates: start: 20060101, end: 20060901
  4. TOPROL-XL [Suspect]
     Indication: VENTRICULAR EXTRASYSTOLES
     Dosage: 50 MG PO
     Route: 048
     Dates: start: 20060101, end: 20060901
  5. TOPROL-XL [Suspect]
     Indication: SUPRAVENTRICULAR TACHYCARDIA
     Dosage: 25 MG PO
     Route: 048
     Dates: start: 20060821, end: 20060101
  6. TOPROL-XL [Suspect]
     Indication: VENTRICULAR EXTRASYSTOLES
     Dosage: 25 MG PO
     Route: 048
     Dates: start: 20060821, end: 20060101
  7. FLEXERIL (CYCLOENZAPRINE HYDROCHLORIDE) [Concomitant]
  8. XANAX [Concomitant]

REACTIONS (10)
  - BLOOD PRESSURE DECREASED [None]
  - CHEST DISCOMFORT [None]
  - CONDITION AGGRAVATED [None]
  - IMPULSIVE BEHAVIOUR [None]
  - INSOMNIA [None]
  - MUSCLE TWITCHING [None]
  - RESTLESSNESS [None]
  - SUPRAVENTRICULAR EXTRASYSTOLES [None]
  - SUPRAVENTRICULAR TACHYCARDIA [None]
  - VENTRICULAR EXTRASYSTOLES [None]
